FAERS Safety Report 13592904 (Version 2)
Quarter: 2017Q3

REPORT INFORMATION
  Report Type: Spontaneous
  Country: KR (occurrence: KR)
  Receive Date: 20170530
  Receipt Date: 20170712
  Transmission Date: 20171127
  Serious: Yes (Hospitalization, Other)
  Sender: FDA-Public Use
  Company Number: KR-009507513-1701KOR004801

PATIENT
  Age: 55 Year
  Sex: Female
  Weight: 46 kg

DRUGS (41)
  1. SELENASE T [Concomitant]
     Indication: PREMEDICATION
     Dosage: 20 ML, ONCE
     Route: 042
     Dates: start: 20161221, end: 20161221
  2. SELENASE T [Concomitant]
     Dosage: 20 ML, ONCE
     Route: 042
     Dates: start: 20170112, end: 20170112
  3. SELENASE T [Concomitant]
     Dosage: 20 ML, ONCE
     Route: 042
     Dates: start: 20170206, end: 20170206
  4. ADRIAMYCIN [Concomitant]
     Active Substance: DOXORUBICIN HYDROCHLORIDE
     Dosage: 84.6 MG, ONCE, CYCLE 2
     Route: 042
     Dates: start: 20170112, end: 20170112
  5. ENDOXAN [Concomitant]
     Active Substance: CYCLOPHOSPHAMIDE
     Dosage: 846 MG, ONCE, CYCLE 2
     Route: 042
     Dates: start: 20170112, end: 20170112
  6. ALOXI [Concomitant]
     Active Substance: PALONOSETRON HYDROCHLORIDE
     Dosage: 0.25 MG, ONCE
     Route: 042
     Dates: start: 20170303, end: 20170303
  7. BISCAN [Concomitant]
     Dosage: 500 MG, TID
     Route: 048
     Dates: start: 20170207, end: 20170216
  8. DEXAMETHASONE. [Concomitant]
     Active Substance: DEXAMETHASONE
     Dosage: 8 MG, QD
     Route: 048
     Dates: start: 20170113, end: 20170115
  9. DEXAMETHASONE. [Concomitant]
     Active Substance: DEXAMETHASONE
     Dosage: 8 MG, QD
     Route: 048
     Dates: start: 20170207, end: 20170209
  10. DEXAMETHASONE. [Concomitant]
     Active Substance: DEXAMETHASONE
     Dosage: 8 MG, QD
     Route: 048
     Dates: start: 20170304, end: 20170306
  11. ALOXI [Concomitant]
     Active Substance: PALONOSETRON HYDROCHLORIDE
     Dosage: 0.25 MG, ONCE
     Route: 042
     Dates: start: 20170112, end: 20170112
  12. ALOXI [Concomitant]
     Active Substance: PALONOSETRON HYDROCHLORIDE
     Dosage: 0.25 MG, ONCE
     Route: 042
     Dates: start: 20170206, end: 20170206
  13. SELENASE T [Concomitant]
     Dosage: 20 ML, ONCE
     Route: 042
     Dates: start: 20170303, end: 20170303
  14. DAGES CAP [Concomitant]
     Dosage: 1 CAPSULE, TID
     Route: 048
     Dates: start: 20170113, end: 20170117
  15. BISCAN [Concomitant]
     Indication: PROPHYLAXIS
     Dosage: 500 MG, TID
     Route: 048
     Dates: start: 20161222, end: 20161231
  16. BISCAN [Concomitant]
     Dosage: 500 MG, TID
     Route: 048
     Dates: start: 20170113, end: 20170122
  17. ENDOXAN [Concomitant]
     Active Substance: CYCLOPHOSPHAMIDE
     Dosage: 676 MG, ONCE
     Route: 042
     Dates: start: 20170303, end: 20170303
  18. DEXAMETHASONE SODIUM PHOSPHATE. [Concomitant]
     Active Substance: DEXAMETHASONE SODIUM PHOSPHATE
     Indication: PROPHYLAXIS OF NAUSEA AND VOMITING
     Dosage: 10 MG, ONCE, STRENGTH: 5MG/ML
     Route: 042
     Dates: start: 20161221, end: 20161221
  19. DEXAMETHASONE SODIUM PHOSPHATE. [Concomitant]
     Active Substance: DEXAMETHASONE SODIUM PHOSPHATE
     Dosage: 10 MG, ONCE; STRENGTH: 5MG/ML
     Route: 042
     Dates: start: 20170112, end: 20170112
  20. ENDOXAN [Concomitant]
     Active Substance: CYCLOPHOSPHAMIDE
     Indication: INVASIVE DUCTAL BREAST CARCINOMA
     Dosage: 846 MG, ONCE, CYCLE 1
     Route: 042
     Dates: start: 20161221, end: 20161221
  21. DEXAMETHASONE. [Concomitant]
     Active Substance: DEXAMETHASONE
     Indication: PROPHYLAXIS OF NAUSEA AND VOMITING
     Dosage: 8 MG, QD
     Route: 048
     Dates: start: 20161222, end: 20161224
  22. H2 TAB [Concomitant]
     Indication: PROPHYLAXIS
     Dosage: 200 MG, TID
     Route: 048
     Dates: start: 20161222, end: 20161226
  23. H2 TAB [Concomitant]
     Dosage: 200 MG, TID
     Route: 048
     Dates: start: 20170314, end: 20170314
  24. EMEND (FOSAPREPITANT DIMEGLUMINE) [Suspect]
     Active Substance: FOSAPREPITANT DIMEGLUMINE
     Dosage: 150 MG, ONCE
     Route: 042
     Dates: start: 20170303, end: 20170303
  25. ADRIAMYCIN [Concomitant]
     Active Substance: DOXORUBICIN HYDROCHLORIDE
     Indication: INVASIVE DUCTAL BREAST CARCINOMA
     Dosage: 84.6 MG, ONCE, CYCLE 1
     Route: 042
     Dates: start: 20161221, end: 20161221
  26. ADRIAMYCIN [Concomitant]
     Active Substance: DOXORUBICIN HYDROCHLORIDE
     Dosage: 84.6 MG, ONCE, CYCLE 3
     Route: 042
     Dates: start: 20170206, end: 20170206
  27. ADRIAMYCIN [Concomitant]
     Active Substance: DOXORUBICIN HYDROCHLORIDE
     Dosage: 67.6 MG, ONCE, CYCLE 4
     Route: 042
     Dates: start: 20170303, end: 20170303
  28. ENDOXAN [Concomitant]
     Active Substance: CYCLOPHOSPHAMIDE
     Dosage: 846 MG, ONCE, CYCLE 3
     Route: 042
     Dates: start: 20170206, end: 20170206
  29. DEXAMETHASONE SODIUM PHOSPHATE. [Concomitant]
     Active Substance: DEXAMETHASONE SODIUM PHOSPHATE
     Dosage: 10 MG, ONCE; STRENGTH: 5MG/ML
     Route: 042
     Dates: start: 20170206, end: 20170206
  30. ALOXI [Concomitant]
     Active Substance: PALONOSETRON HYDROCHLORIDE
     Indication: PROPHYLAXIS OF NAUSEA AND VOMITING
     Dosage: 0.25 MG, ONCE
     Route: 042
     Dates: start: 20161221, end: 20161221
  31. DAGES CAP [Concomitant]
     Indication: PROPHYLAXIS
     Dosage: 1 CAPSULE, TID
     Route: 048
     Dates: start: 20161222, end: 20161226
  32. EMEND (FOSAPREPITANT DIMEGLUMINE) [Suspect]
     Active Substance: FOSAPREPITANT DIMEGLUMINE
     Indication: PROPHYLAXIS OF NAUSEA AND VOMITING
     Dosage: 150 MG, ONCE
     Route: 042
     Dates: start: 20161221, end: 20161221
  33. EMEND (FOSAPREPITANT DIMEGLUMINE) [Suspect]
     Active Substance: FOSAPREPITANT DIMEGLUMINE
     Dosage: 150 MG, ONCE
     Route: 042
     Dates: start: 20170206, end: 20170206
  34. DEXAMETHASONE SODIUM PHOSPHATE. [Concomitant]
     Active Substance: DEXAMETHASONE SODIUM PHOSPHATE
     Dosage: 10 MG, ONCE; STRENGTH: 5MG/ML
     Route: 042
     Dates: start: 20170303, end: 20170303
  35. ACTOSMET [Concomitant]
     Indication: DIABETES MELLITUS
     Dosage: 1 TABLET, QD
     Route: 048
     Dates: start: 20161217, end: 20170210
  36. H2 TAB [Concomitant]
     Dosage: 200 MG, TID
     Route: 048
     Dates: start: 20170113, end: 20170117
  37. MACPERAN [Concomitant]
     Active Substance: METOCLOPRAMIDE HYDROCHLORIDE
     Dosage: 5 MG, TID
     Route: 048
     Dates: start: 20170113, end: 20170117
  38. EMEND (FOSAPREPITANT DIMEGLUMINE) [Suspect]
     Active Substance: FOSAPREPITANT DIMEGLUMINE
     Dosage: 150 MG, ONCE
     Route: 042
     Dates: start: 20170112, end: 20170112
  39. MACPERAN [Concomitant]
     Active Substance: METOCLOPRAMIDE HYDROCHLORIDE
     Indication: PROPHYLAXIS OF NAUSEA AND VOMITING
     Dosage: 5 MG, TID
     Route: 048
     Dates: start: 20161222, end: 20161226
  40. BISCAN [Concomitant]
     Dosage: 500 MG, ONCE
     Route: 048
     Dates: start: 20170121, end: 20170121
  41. BISCAN [Concomitant]
     Dosage: 500 MG, TID
     Route: 048
     Dates: start: 20170119, end: 20170120

REACTIONS (8)
  - Pyelonephritis acute [Recovered/Resolved]
  - Thrombocytopenia [Recovered/Resolved]
  - Pyrexia [Recovered/Resolved]
  - Febrile neutropenia [Recovered/Resolved]
  - Anaemia [Recovered/Resolved]
  - Influenza like illness [Recovered/Resolved]
  - Febrile neutropenia [Recovered/Resolved]
  - Chills [Recovered/Resolved]

NARRATIVE: CASE EVENT DATE: 20170101
